FAERS Safety Report 9342693 (Version 1)
Quarter: 2013Q2

REPORT INFORMATION
  Report Type: Spontaneous
  Country: US (occurrence: US)
  Receive Date: 20130611
  Receipt Date: 20130611
  Transmission Date: 20140414
  Serious: No
  Sender: FDA-Public Use
  Company Number: US-009507513-1306USA002106

PATIENT
  Sex: Female

DRUGS (2)
  1. CLARITIN [Suspect]
     Indication: PAIN
     Dosage: 20 MG, QD
     Route: 048
  2. CLARITIN [Suspect]
     Indication: CHEMOTHERAPY

REACTIONS (2)
  - Intentional overdose [Unknown]
  - Off label use [Unknown]
